APPROVED DRUG PRODUCT: INDO-LEMMON
Active Ingredient: INDOMETHACIN
Strength: 25MG
Dosage Form/Route: CAPSULE;ORAL
Application: A070266 | Product #001
Applicant: TEVA PHARMACEUTICALS USA INC
Approved: Nov 7, 1985 | RLD: No | RS: No | Type: DISCN